FAERS Safety Report 6523310-0 (Version None)
Quarter: 2009Q4

REPORT INFORMATION
  Report Type: 
  Country: None (occurrence: None)
  Receive Date: 20091231
  Receipt Date: 20091222
  Transmission Date: 20100525
  Serious: Yes (Life-Threatening, Other)
  Sender: FDA-Public Use
  Company Number: US-JNJFOC-20091005966

PATIENT
  Sex: Female
  Weight: 62.6 kg

DRUGS (3)
  1. REMICADE [Suspect]
     Indication: CROHN'S DISEASE
     Dosage: A TOTAL OF 33 INFUSIONS
     Route: 042
     Dates: start: 20030225, end: 20081209
  2. MERCAPTOPURINE [Suspect]
     Indication: CROHN'S DISEASE
  3. MESALAMINE [Concomitant]
     Indication: CROHN'S DISEASE

REACTIONS (1)
  - INFLAMMATORY CARCINOMA OF THE BREAST [None]
